FAERS Safety Report 5390783-9 (Version None)
Quarter: 2007Q3

REPORT INFORMATION
  Report Type: 
  Country: None (occurrence: None)
  Receive Date: 20070716
  Receipt Date: 20070628
  Transmission Date: 20080115
  Serious: Yes (Hospitalization)
  Sender: FDA-Public Use
  Company Number: 8025241

PATIENT
  Age: 51 Year
  Sex: Female

DRUGS (1)
  1. THEOPHYLLINE [Suspect]
     Indication: ASTHMA
     Dates: start: 19980101

REACTIONS (3)
  - AUTOIMMUNE THYROIDITIS [None]
  - HYPERCALCAEMIA [None]
  - RENAL FAILURE [None]
